FAERS Safety Report 13749654 (Version 1)
Quarter: 2017Q3

REPORT INFORMATION
  Report Type: Spontaneous
  Country: US (occurrence: US)
  Receive Date: 20170713
  Receipt Date: 20170713
  Transmission Date: 20171127
  Serious: Yes (Other)
  Sender: FDA-Public Use
  Company Number: US-SA-2016SA140493

PATIENT
  Age: 56 Year
  Sex: Male
  Weight: 105.6 kg

DRUGS (5)
  1. AMARYL [Suspect]
     Active Substance: GLIMEPIRIDE
     Indication: TYPE 2 DIABETES MELLITUS
     Route: 065
     Dates: start: 20150416, end: 20160618
  2. ASPIRIN. [Concomitant]
     Active Substance: ASPIRIN
  3. AMARYL [Suspect]
     Active Substance: GLIMEPIRIDE
     Indication: TYPE 2 DIABETES MELLITUS
     Route: 065
  4. ATORVASTATIN [Concomitant]
     Active Substance: ATORVASTATIN
  5. HYDROCHLOROTHIAZIDE/LISINOPRIL [Concomitant]
     Dosage: 20/12.5 MG DAILY

REACTIONS (3)
  - Hyperhidrosis [Unknown]
  - Hypoglycaemia [Unknown]
  - Loss of consciousness [Unknown]

NARRATIVE: CASE EVENT DATE: 20160618
